FAERS Safety Report 8795527 (Version 2)
Quarter: 2015Q2

REPORT INFORMATION
  Report Type: Report from Study
  Country: US (occurrence: US)
  Receive Date: 20120917
  Receipt Date: 20150616
  Transmission Date: 20150821
  Serious: Yes (Death)
  Sender: FDA-Public Use
  Company Number: US-ROCHE-1125926

PATIENT
  Sex: Male
  Weight: 73 kg

DRUGS (7)
  1. AVASTIN [Suspect]
     Active Substance: BEVACIZUMAB
     Indication: SMALL INTESTINE CARCINOMA
     Dosage: SAME DOSE WAS ADMINISTERED ON 19/MAY/2006 AND 06/JUN/2006.
     Route: 042
     Dates: start: 20060504
  2. FLUOROURACIL. [Concomitant]
     Active Substance: FLUOROURACIL
     Route: 042
  3. PEPCID [Concomitant]
     Active Substance: FAMOTIDINE
     Route: 042
  4. LEUCOVORIN [Concomitant]
     Active Substance: LEUCOVORIN
     Route: 042
  5. GRANISETRON [Concomitant]
     Active Substance: GRANISETRON
     Route: 042
  6. CAMPTOSAR [Concomitant]
     Active Substance: IRINOTECAN HYDROCHLORIDE
     Route: 042
  7. DEXAMETHASONE. [Concomitant]
     Active Substance: DEXAMETHASONE
     Route: 042

REACTIONS (2)
  - Death [Fatal]
  - Off label use [Unknown]
